FAERS Safety Report 6850077-9 (Version None)
Quarter: 2010Q3

REPORT INFORMATION
  Report Type: 
  Country: None (occurrence: None)
  Receive Date: 20100716
  Receipt Date: 20081028
  Transmission Date: 20110219
  Serious: Yes (Other)
  Sender: FDA-Public Use
  Company Number: US-PFIZER INC-2007085361

PATIENT
  Sex: Male

DRUGS (2)
  1. CHANTIX [Suspect]
     Indication: SMOKING CESSATION THERAPY
     Dates: start: 20070929
  2. DRUG, UNSPECIFIED [Concomitant]

REACTIONS (16)
  - ABDOMINAL PAIN UPPER [None]
  - COLD SWEAT [None]
  - DECREASED APPETITE [None]
  - DRUG INEFFECTIVE [None]
  - DYSGEUSIA [None]
  - FATIGUE [None]
  - FEELING ABNORMAL [None]
  - HEADACHE [None]
  - MUSCULAR WEAKNESS [None]
  - NERVOUSNESS [None]
  - PALPITATIONS [None]
  - POOR QUALITY SLEEP [None]
  - TOBACCO USER [None]
  - TREMOR [None]
  - VOMITING [None]
  - WEIGHT DECREASED [None]
